FAERS Safety Report 15595756 (Version 2)
Quarter: 2018Q4

REPORT INFORMATION
  Report Type: Spontaneous
  Country: JP (occurrence: JP)
  Receive Date: 20181107
  Receipt Date: 20181113
  Transmission Date: 20190205
  Serious: Yes (Other)
  Sender: FDA-Public Use
  Company Number: JP-TEVA-2018-JP-972197

PATIENT
  Age: 7 Decade
  Sex: Female

DRUGS (1)
  1. CISPLATIN. [Suspect]
     Active Substance: CISPLATIN
     Indication: PAGET^S DISEASE OF THE VULVA
     Dosage: RECEIVED 7 CYCLES
     Route: 065

REACTIONS (1)
  - Femur fracture [Unknown]
